FAERS Safety Report 7776972-4 (Version None)
Quarter: 2011Q3

REPORT INFORMATION
  Report Type: 
  Country: None (occurrence: None)
  Receive Date: 20110926
  Receipt Date: 20110912
  Transmission Date: 20111222
  Serious: Yes (Hospitalization, Other)
  Sender: FDA-Public Use
  Company Number: US-BAYER-2011-027219

PATIENT
  Age: 22 Year
  Sex: Female
  Weight: 92.517 kg

DRUGS (4)
  1. YAZ [Suspect]
     Indication: ORAL CONTRACEPTION
     Dosage: UNK
     Route: 048
     Dates: start: 20070601, end: 20090327
  2. YAZ [Suspect]
     Indication: ACNE
  3. YAZ [Suspect]
     Indication: PREMENSTRUAL SYNDROME
  4. YAZ [Suspect]

REACTIONS (9)
  - DEEP VEIN THROMBOSIS [None]
  - FLANK PAIN [None]
  - CHOLECYSTITIS [None]
  - DYSPNOEA [None]
  - ABSCESS [None]
  - PULMONARY EMBOLISM [None]
  - CHOLECYSTITIS ACUTE [None]
  - PYELONEPHRITIS [None]
  - CHEST PAIN [None]
